FAERS Safety Report 9967653 (Version 2)
Quarter: 2014Q1

REPORT INFORMATION
  Report Type: Report from Study
  Country: PR (occurrence: PR)
  Receive Date: 20140305
  Receipt Date: 20140305
  Transmission Date: 20141002
  Serious: No
  Sender: FDA-Public Use
  Company Number: PR-ABBVIE-12P-131-1002425-00

PATIENT
  Age: 27 Year
  Sex: Female
  Weight: 48.12 kg

DRUGS (3)
  1. HUMIRA [Suspect]
     Indication: CROHN^S DISEASE
     Route: 058
     Dates: start: 2012
  2. HEMAPLEX IRON SUPPLEMENT [Concomitant]
     Indication: ANAEMIA
     Route: 048
  3. IMURAN [Concomitant]
     Indication: CROHN^S DISEASE
     Route: 048

REACTIONS (1)
  - Injection site erythema [Recovered/Resolved]
